FAERS Safety Report 16427635 (Version 2)
Quarter: 2020Q4

REPORT INFORMATION
  Report Type: Spontaneous
  Country: US (occurrence: US)
  Receive Date: 20190613
  Receipt Date: 20201022
  Transmission Date: 20210113
  Serious: Yes (Death, Hospitalization)
  Sender: FDA-Public Use
  Company Number: US-MYLANLABS-2019M1055427

PATIENT
  Age: 20 Year
  Sex: Male

DRUGS (12)
  1. NO DRUG NAME [Suspect]
     Active Substance: UNSPECIFIED INGREDIENT
     Indication: PROGRESSIVE MULTIFOCAL LEUKOENCEPHALOPATHY
  2. MARAVIROC [Suspect]
     Active Substance: MARAVIROC
     Indication: JC VIRUS INFECTION
     Dosage: UNK
     Route: 065
  3. MARAVIROC [Suspect]
     Active Substance: MARAVIROC
     Indication: IMMUNE RECONSTITUTION INFLAMMATORY SYNDROME
  4. MIRTAZAPINE. [Suspect]
     Active Substance: MIRTAZAPINE
     Indication: JC VIRUS INFECTION
     Dosage: UNK
     Route: 065
  5. VALGANCICLOVIR. [Suspect]
     Active Substance: VALGANCICLOVIR
     Indication: CYTOMEGALOVIRUS INFECTION
  6. MYCOPHENOLATE MOFETIL. [Suspect]
     Active Substance: MYCOPHENOLATE MOFETIL
     Indication: IMMUNOSUPPRESSANT DRUG THERAPY
     Dosage: 1000 MILLIGRAM, BID
     Route: 065
  7. VALGANCICLOVIR. [Suspect]
     Active Substance: VALGANCICLOVIR
     Indication: PROPHYLAXIS
     Dosage: 900 MILLIGRAM, BID
     Route: 065
  8. MIRTAZAPINE. [Suspect]
     Active Substance: MIRTAZAPINE
     Indication: PROGRESSIVE MULTIFOCAL LEUKOENCEPHALOPATHY
  9. MARAVIROC [Suspect]
     Active Substance: MARAVIROC
     Indication: PROGRESSIVE MULTIFOCAL LEUKOENCEPHALOPATHY
  10. NO DRUG NAME [Suspect]
     Active Substance: UNSPECIFIED INGREDIENT
     Indication: JC VIRUS INFECTION
     Dosage: SINGLE DOSE OF 60MG PREDNISONE FOLLOWED BY A 12-DAY TAPER
     Route: 048
  11. NO DRUG NAME [Suspect]
     Active Substance: UNSPECIFIED INGREDIENT
     Indication: DEAFNESS NEUROSENSORY
  12. TACROLIMUS. [Suspect]
     Active Substance: TACROLIMUS
     Indication: IMMUNOSUPPRESSANT DRUG THERAPY
     Dosage: TROUGH LEVELS CONSISTENTLY 7.8-10 NG/ML
     Route: 065

REACTIONS (12)
  - Progressive multifocal leukoencephalopathy [Fatal]
  - Pulmonary haemorrhage [Fatal]
  - Neurological decompensation [Fatal]
  - Neutropenia [Recovering/Resolving]
  - Off label use [Unknown]
  - Deafness neurosensory [Fatal]
  - Urinary incontinence [Fatal]
  - JC virus infection [Fatal]
  - Drug ineffective [Fatal]
  - Pneumonia aspiration [Fatal]
  - Dysphagia [Fatal]
  - Pupils unequal [Fatal]
